FAERS Safety Report 9807870 (Version 2)
Quarter: 2014Q2

REPORT INFORMATION
  Report Type: Not Available
  Country: SE (occurrence: SE)
  Receive Date: 20140110
  Receipt Date: 20140404
  Transmission Date: 20141212
  Serious: Yes (Hospitalization)
  Sender: FDA-Public Use
  Company Number: SE-ASTELLAS-2014EU000094

PATIENT
  Age: 88 Year
  Sex: Female

DRUGS (1)
  1. BETMIGA [Suspect]
     Indication: INCONTINENCE
     Dosage: 50 MG, UNKNOWN/D
     Route: 048
     Dates: start: 20130713, end: 20130912

REACTIONS (1)
  - Sleep disorder [Not Recovered/Not Resolved]
